FAERS Safety Report 5844372-X (Version None)
Quarter: 2008Q3

REPORT INFORMATION
  Report Type: 
  Country: None (occurrence: None)
  Receive Date: 20080808
  Receipt Date: 20080725
  Transmission Date: 20090109
  Serious: Yes (Hospitalization)
  Sender: FDA-Public Use
  Company Number: 2008BI019256

PATIENT
  Age: 29 Year
  Sex: Female
  Weight: 64 kg

DRUGS (4)
  1. AVONEX [Suspect]
     Indication: RELAPSING-REMITTING MULTIPLE SCLEROSIS
     Dosage: QW; IM
     Route: 030
  2. PROPULSID [Concomitant]
  3. NOVORAPID [Concomitant]
  4. LENTUS [Concomitant]

REACTIONS (6)
  - BURNING SENSATION [None]
  - DIABETES MELLITUS INADEQUATE CONTROL [None]
  - DISEASE RECURRENCE [None]
  - FATIGUE [None]
  - PYELONEPHRITIS [None]
  - STRESS [None]
